FAERS Safety Report 20418584 (Version 1)
Quarter: 2022Q1

REPORT INFORMATION
  Report Type: Spontaneous
  Country: UM (occurrence: US)
  Receive Date: 20220202
  Receipt Date: 20220202
  Transmission Date: 20220423
  Serious: No
  Sender: FDA-Public Use
  Company Number: UM-SA-SAC20220127001196

PATIENT

DRUGS (1)
  1. ADMELOG [Suspect]
     Active Substance: INSULIN LISPRO
     Indication: Type 1 diabetes mellitus
     Dosage: UNK

REACTIONS (3)
  - Device issue [Unknown]
  - Drug ineffective [Unknown]
  - Product use issue [Unknown]
